FAERS Safety Report 14188201 (Version 1)
Quarter: 2017Q4

REPORT INFORMATION
  Report Type: Spontaneous
  Country: CN (occurrence: CN)
  Receive Date: 20171114
  Receipt Date: 20171114
  Transmission Date: 20180321
  Serious: Yes (Other)
  Sender: FDA-Public Use
  Company Number: CN-ABBVIE-17P-035-2163907-00

PATIENT
  Age: 54 Year
  Sex: Female

DRUGS (2)
  1. DEPAKINE CHRONO [Suspect]
     Active Substance: VALPROATE SODIUM
     Indication: MENTAL DISORDER
     Route: 048
     Dates: start: 20170321, end: 20170930
  2. OU LAN NING (OLANZAPINE) [Suspect]
     Active Substance: OLANZAPINE
     Indication: PSYCHOTIC DISORDER
     Route: 048
     Dates: start: 20170419, end: 20170510

REACTIONS (3)
  - Red blood cell count abnormal [None]
  - Granulocytopenia [Unknown]
  - White blood cell count abnormal [None]

NARRATIVE: CASE EVENT DATE: 20170504
